FAERS Safety Report 8822509 (Version 1)
Quarter: 2012Q4

REPORT INFORMATION
  Report Type: 
  Country: US (occurrence: US)
  Receive Date: 20121003
  Receipt Date: 20121003
  Transmission Date: 20130627
  Serious: No
  Sender: FDA-Public Use
  Company Number: US-B.I. PHARMACEUTICALS,INC./RIDGEFIELD-2012-BP-23442BP

PATIENT
  Sex: Female
  Weight: 62 kg

DRUGS (5)
  1. SPIRIVA [Suspect]
     Indication: BRONCHITIS CHRONIC
     Dosage: 18 mcg
     Route: 055
     Dates: start: 201103
  2. LOTEMAX [Concomitant]
     Indication: TRANSPLANT REJECTION
     Dates: start: 2011
  3. ADVAIR [Concomitant]
     Indication: ASTHMA
  4. SINGULAIR [Concomitant]
     Indication: SINUS DISORDER
     Dosage: 10 mg
     Route: 048
     Dates: start: 2006
  5. MIRALAX [Concomitant]
     Indication: CONSTIPATION
     Route: 048

REACTIONS (4)
  - Myalgia [Not Recovered/Not Resolved]
  - Weight increased [Not Recovered/Not Resolved]
  - Blood pressure increased [Not Recovered/Not Resolved]
  - Corneal dystrophy [Recovered/Resolved]
